FAERS Safety Report 13736466 (Version 1)
Quarter: 2017Q3

REPORT INFORMATION
  Report Type: Spontaneous
  Country: US (occurrence: US)
  Receive Date: 20170710
  Receipt Date: 20170710
  Transmission Date: 20171127
  Serious: No
  Sender: FDA-Public Use
  Company Number: US-ELI_LILLY_AND_COMPANY-US201706012589

PATIENT
  Age: 52 Year
  Sex: Female
  Weight: 58.96 kg

DRUGS (2)
  1. ADCIRCA [Suspect]
     Active Substance: TADALAFIL
     Indication: PRODUCT USED FOR UNKNOWN INDICATION
     Dosage: UNK
  2. AMBRISENTAN [Suspect]
     Active Substance: AMBRISENTAN
     Indication: PRODUCT USED FOR UNKNOWN INDICATION
     Dosage: 5 MG, DAILY
     Route: 065
     Dates: start: 20170523, end: 20170607

REACTIONS (7)
  - Oxygen saturation abnormal [Unknown]
  - Wheezing [Unknown]
  - Back pain [Recovering/Resolving]
  - Dyspnoea [Unknown]
  - Weight increased [Recovering/Resolving]
  - Cough [Unknown]
  - Fluid retention [Unknown]
